FAERS Safety Report 25049952 (Version 1)
Quarter: 2025Q1

REPORT INFORMATION
  Report Type: Spontaneous
  Country: ES (occurrence: ES)
  Receive Date: 20250307
  Receipt Date: 20250307
  Transmission Date: 20250409
  Serious: Yes (Other)
  Sender: MSN LABORATORIES PRIVATE LIMITED
  Company Number: None

PATIENT

DRUGS (1)
  1. ROSUVASTATIN [Suspect]
     Active Substance: ROSUVASTATIN
     Indication: Dyslipidaemia
     Route: 065
     Dates: start: 20250122, end: 20250128

REACTIONS (5)
  - Face oedema [Unknown]
  - Erythema [Unknown]
  - Pruritus [Unknown]
  - Urticaria [Unknown]
  - Malaise [Unknown]

NARRATIVE: CASE EVENT DATE: 20250124
